FAERS Safety Report 4908586-5 (Version None)
Quarter: 2006Q1

REPORT INFORMATION
  Report Type: 
  Country: None (occurrence: None)
  Receive Date: 20060210
  Receipt Date: 20050907
  Transmission Date: 20060701
  Serious: No
  Sender: FDA-Public Use
  Company Number: US-GLAXOSMITHKLINE-A0573308A

PATIENT
  Age: 43 Year
  Sex: Female

DRUGS (3)
  1. PAXIL CR [Suspect]
     Indication: MAJOR DEPRESSION
     Dosage: 25MG TWICE PER DAY
     Route: 048
  2. LITHIUM [Concomitant]
  3. PROVIGIL [Concomitant]

REACTIONS (13)
  - AGITATION [None]
  - ANGER [None]
  - CRYING [None]
  - DEPRESSION [None]
  - DIARRHOEA [None]
  - DIZZINESS [None]
  - FATIGUE [None]
  - HYPERHIDROSIS [None]
  - INFLUENZA LIKE ILLNESS [None]
  - MOOD ALTERED [None]
  - NAUSEA [None]
  - NERVOUSNESS [None]
  - PARAESTHESIA [None]
